FAERS Safety Report 20255546 (Version 3)
Quarter: 2022Q1

REPORT INFORMATION
  Report Type: Report from Study
  Country: CN (occurrence: CN)
  Receive Date: 20211230
  Receipt Date: 20220201
  Transmission Date: 20220423
  Serious: Yes (Hospitalization)
  Sender: FDA-Public Use
  Company Number: CN-ZAILAB-ZAI202100907

PATIENT
  Age: 59 Year
  Sex: Male
  Weight: 71 kg

DRUGS (14)
  1. RIPRETINIB [Suspect]
     Active Substance: RIPRETINIB
     Indication: Gastrointestinal stromal tumour
     Dosage: 150 MG, QD
     Route: 048
     Dates: start: 20200702, end: 20210203
  2. RIPRETINIB [Suspect]
     Active Substance: RIPRETINIB
     Dosage: 150 MG, QD
     Route: 048
     Dates: start: 20210205, end: 20210308
  3. RIPRETINIB [Suspect]
     Active Substance: RIPRETINIB
     Dosage: 150 MILLIGRAM, QD
     Route: 048
     Dates: start: 20210310, end: 20210505
  4. RIPRETINIB [Suspect]
     Active Substance: RIPRETINIB
     Dosage: 150 MG, QD
     Route: 048
     Dates: start: 20210507, end: 20210629
  5. RIPRETINIB [Suspect]
     Active Substance: RIPRETINIB
     Dosage: 150 MG, QD
     Route: 048
     Dates: start: 20210701, end: 20210909
  6. RIPRETINIB [Suspect]
     Active Substance: RIPRETINIB
     Dosage: 150 MG, BID
     Route: 048
     Dates: start: 20210910, end: 20211018
  7. RIPRETINIB [Suspect]
     Active Substance: RIPRETINIB
     Dosage: 150 MG, BID
     Route: 048
     Dates: start: 20211021, end: 20211119
  8. RIPRETINIB [Suspect]
     Active Substance: RIPRETINIB
     Dosage: 100 MG, BID
     Route: 048
     Dates: start: 20211119, end: 20211126
  9. RIPRETINIB [Suspect]
     Active Substance: RIPRETINIB
     Dosage: 100 MG, BID
     Route: 048
     Dates: start: 20211129, end: 20211216
  10. RIPRETINIB [Suspect]
     Active Substance: RIPRETINIB
     Dosage: 150 MG, BID
     Route: 048
     Dates: start: 20211221
  11. ASINI CORII COLLA [Concomitant]
     Indication: Anaemia prophylaxis
     Dosage: 15.625 G, QD
     Route: 048
     Dates: start: 20211125
  12. METOPROLOL SUCCINATE [Concomitant]
     Active Substance: METOPROLOL SUCCINATE
     Indication: Left ventricular dysfunction
     Dosage: 23.75 MG, QD
     Route: 048
     Dates: start: 20210506, end: 20211217
  13. ESTAZOLAM [Concomitant]
     Active Substance: ESTAZOLAM
     Indication: Insomnia
     Dosage: 1 MG,AT BEDTIME
     Route: 048
     Dates: start: 2008
  14. CALTRATE WITH VITAMIN D [Concomitant]
     Active Substance: CALCIUM CARBONATE\CHOLECALCIFEROL
     Indication: Tetany
     Dosage: 1.05 G, BID
     Route: 048
     Dates: start: 20210827

REACTIONS (1)
  - Atrial fibrillation [Recovered/Resolved]

NARRATIVE: CASE EVENT DATE: 20211216
